FAERS Safety Report 9147369 (Version 2)
Quarter: 2013Q2

REPORT INFORMATION
  Report Type: Spontaneous
  Country: US (occurrence: US)
  Receive Date: 20130307
  Receipt Date: 20130412
  Transmission Date: 20140414
  Serious: Yes (Death)
  Sender: FDA-Public Use
  Company Number: US-GLAXOSMITHKLINE-A1014985A

PATIENT
  Sex: Male

DRUGS (6)
  1. VOTRIENT [Suspect]
     Indication: PRODUCT USED FOR UNKNOWN INDICATION
     Dosage: 400MG TWICE PER DAY
     Route: 048
     Dates: start: 20121112, end: 20130207
  2. NORVASC [Concomitant]
  3. SIMVASTATIN [Concomitant]
  4. OXYCONTIN [Concomitant]
  5. PLAVIX [Concomitant]
  6. NEXIUM [Concomitant]

REACTIONS (2)
  - Metastases to central nervous system [Fatal]
  - Disease progression [Fatal]
